FAERS Safety Report 9254166 (Version 1)
Quarter: 2013Q2

REPORT INFORMATION
  Report Type: Report from Study
  Country: FI (occurrence: FI)
  Receive Date: 20130425
  Receipt Date: 20130425
  Transmission Date: 20140414
  Serious: Yes (Other)
  Sender: FDA-Public Use
  Company Number: PHHY2013FI039295

PATIENT
  Age: 55 Year
  Sex: Female

DRUGS (3)
  1. LEPONEX [Suspect]
  2. VALPROATE [Concomitant]
     Dosage: UNK
  3. CITALOPRAM [Concomitant]
     Dosage: UNK

REACTIONS (7)
  - Hypokalaemia [Unknown]
  - Electrocardiogram QT prolonged [Unknown]
  - Electrocardiogram QRS complex shortened [Unknown]
  - Electrocardiogram T wave amplitude decreased [Unknown]
  - Electrocardiogram repolarisation abnormality [Unknown]
  - Overdose [Unknown]
  - Electrocardiogram U-wave abnormality [Unknown]
